FAERS Safety Report 23315872 (Version 3)
Quarter: 2024Q1

REPORT INFORMATION
  Report Type: Report from Study
  Country: CN (occurrence: CN)
  Receive Date: 20231219
  Receipt Date: 20240123
  Transmission Date: 20240409
  Serious: No
  Sender: FDA-Public Use
  Company Number: CN-PFIZER INC-PV202300203103

PATIENT
  Age: 86 Year
  Sex: Female
  Weight: 61 kg

DRUGS (54)
  1. NIRMATRELVIR\RITONAVIR [Suspect]
     Active Substance: NIRMATRELVIR\RITONAVIR
     Indication: COVID-19 treatment
     Dosage: [NIRMATRELVIR 300MG]/[RITONAVIR 100MG], 2X/DAY
     Route: 048
     Dates: start: 20220423, end: 20220428
  2. NIRMATRELVIR\RITONAVIR [Suspect]
     Active Substance: NIRMATRELVIR\RITONAVIR
     Dosage: [NIRMATRELVIR 300MG]/[RITONAVIR 100MG], 2X/DAY
     Route: 048
     Dates: start: 20220504, end: 20220508
  3. OXYGEN [Concomitant]
     Active Substance: OXYGEN
     Indication: COVID-19
     Dosage: UNK
     Dates: start: 20220419, end: 20220513
  4. LEVOFLOXACIN SODIUM [Concomitant]
     Active Substance: LEVOFLOXACIN SODIUM
     Indication: Infection
     Dosage: SODIUM CHLORIDE
     Route: 042
     Dates: start: 20220419, end: 20220423
  5. AMINO ACIDS, SOURCE UNSPECIFIED [Concomitant]
     Active Substance: AMINO ACIDS, SOURCE UNSPECIFIED
     Indication: Nutritional supplementation
     Dosage: COMPOUND
     Route: 042
     Dates: start: 20220419, end: 20220513
  6. ESOMEPRAZOLE [Concomitant]
     Active Substance: ESOMEPRAZOLE
     Indication: Acidosis
     Dosage: UNK
     Route: 042
     Dates: start: 20220419, end: 20220426
  7. ESOMEPRAZOLE [Concomitant]
     Active Substance: ESOMEPRAZOLE
     Indication: Prophylaxis
  8. POTASSIUM CHLORIDE [Concomitant]
     Active Substance: POTASSIUM CHLORIDE
     Indication: Mineral supplementation
     Dosage: UNK
     Route: 042
     Dates: start: 20220419, end: 20220421
  9. POTASSIUM CHLORIDE [Concomitant]
     Active Substance: POTASSIUM CHLORIDE
     Dosage: NASOGASTRIC
     Dates: start: 20220421, end: 20220422
  10. POTASSIUM CHLORIDE [Concomitant]
     Active Substance: POTASSIUM CHLORIDE
     Dosage: UNK
     Route: 042
     Dates: start: 20220419, end: 20220419
  11. POTASSIUM CHLORIDE [Concomitant]
     Active Substance: POTASSIUM CHLORIDE
     Dosage: NASOGASTRIC
     Dates: start: 20220421, end: 20220421
  12. POTASSIUM CHLORIDE [Concomitant]
     Active Substance: POTASSIUM CHLORIDE
     Dosage: UNK
     Route: 048
     Dates: start: 20220423, end: 20220423
  13. POTASSIUM CHLORIDE [Concomitant]
     Active Substance: POTASSIUM CHLORIDE
     Dosage: UNK
     Route: 042
     Dates: start: 20220423, end: 20220423
  14. POTASSIUM CHLORIDE [Concomitant]
     Active Substance: POTASSIUM CHLORIDE
     Dosage: UNK
     Route: 042
     Dates: start: 20220424, end: 20220424
  15. POTASSIUM CHLORIDE [Concomitant]
     Active Substance: POTASSIUM CHLORIDE
     Dosage: UNK
     Route: 042
     Dates: start: 20220425, end: 20220425
  16. POTASSIUM CHLORIDE [Concomitant]
     Active Substance: POTASSIUM CHLORIDE
     Dosage: UNK
     Route: 042
     Dates: start: 20220425, end: 20220513
  17. CEFEPIME HYDROCHLORIDE [Concomitant]
     Active Substance: CEFEPIME HYDROCHLORIDE
     Indication: Infection
     Dosage: UNK
     Route: 042
     Dates: start: 20220420, end: 20220420
  18. CEFEPIME HYDROCHLORIDE [Concomitant]
     Active Substance: CEFEPIME HYDROCHLORIDE
     Dosage: UNK
     Route: 042
     Dates: start: 20220420, end: 20220501
  19. FUROSEMIDE [Concomitant]
     Active Substance: FUROSEMIDE
     Indication: Polyuria
     Dosage: UNK
     Route: 042
     Dates: start: 20220420, end: 20220420
  20. FUROSEMIDE [Concomitant]
     Active Substance: FUROSEMIDE
     Dosage: UNK
     Route: 042
     Dates: start: 20220420, end: 20220426
  21. FUROSEMIDE [Concomitant]
     Active Substance: FUROSEMIDE
     Dosage: UNK
     Route: 042
     Dates: start: 20220426, end: 20220426
  22. SPIRONOLACTONE [Concomitant]
     Active Substance: SPIRONOLACTONE
     Indication: Polyuria
     Dosage: UNK
     Route: 048
     Dates: start: 20220420, end: 20220420
  23. SPIRONOLACTONE [Concomitant]
     Active Substance: SPIRONOLACTONE
     Dosage: UNK
     Route: 048
     Dates: start: 20220420, end: 20220426
  24. POTASSIUM CHLORIDE [Concomitant]
     Active Substance: POTASSIUM CHLORIDE
     Indication: Mineral supplementation
     Dosage: SUSTAINED-RELEASE
     Route: 048
     Dates: start: 20220420, end: 20220420
  25. POTASSIUM CHLORIDE [Concomitant]
     Active Substance: POTASSIUM CHLORIDE
     Dosage: SUSTAINED-RELEASE
     Route: 048
     Dates: start: 20220420, end: 20220426
  26. SODIUM CHLORIDE [Concomitant]
     Active Substance: SODIUM CHLORIDE
     Indication: Supplementation therapy
     Dosage: CONCENTRATED
     Route: 045
     Dates: start: 20220421, end: 20220421
  27. SODIUM CHLORIDE [Concomitant]
     Active Substance: SODIUM CHLORIDE
     Dosage: CONCENTRATED
     Route: 045
     Dates: start: 20220421, end: 20220422
  28. MOXIFLOXACIN HYDROCHLORIDE [Concomitant]
     Active Substance: MOXIFLOXACIN HYDROCHLORIDE\MOXIFLOXACIN HYDROCHLORIDE MONOHYDRATE
     Indication: Infection
     Dosage: UNK
     Route: 042
     Dates: start: 20220423, end: 20220501
  29. DOXOFYLLINE [Concomitant]
     Active Substance: DOXOFYLLINE
     Indication: Asthma
     Dosage: UNK
     Route: 042
     Dates: start: 20220426, end: 20220513
  30. AMINOPHYLLINE\CHLORPHENIRAMINE MALEATE\METHOXYPHENAMINE HYDROCHLORIDE\ [Concomitant]
     Active Substance: AMINOPHYLLINE\CHLORPHENIRAMINE MALEATE\METHOXYPHENAMINE HYDROCHLORIDE\NOSCAPINE
     Indication: Asthma
     Dosage: UNK
     Route: 048
     Dates: start: 20220426, end: 20220426
  31. AMINOPHYLLINE\CHLORPHENIRAMINE MALEATE\METHOXYPHENAMINE HYDROCHLORIDE\ [Concomitant]
     Active Substance: AMINOPHYLLINE\CHLORPHENIRAMINE MALEATE\METHOXYPHENAMINE HYDROCHLORIDE\NOSCAPINE
     Dosage: UNK
     Route: 048
     Dates: start: 20220426, end: 20220513
  32. METOPROLOL SUCCINATE [Concomitant]
     Active Substance: METOPROLOL SUCCINATE
     Indication: Heart rate
     Dosage: SUSTAINED-RELEASE
     Route: 048
     Dates: start: 20220424, end: 20220426
  33. METOPROLOL SUCCINATE [Concomitant]
     Active Substance: METOPROLOL SUCCINATE
     Dosage: SUSTAINED-RELEASE
     Route: 048
     Dates: start: 20220425, end: 20220425
  34. METOPROLOL SUCCINATE [Concomitant]
     Active Substance: METOPROLOL SUCCINATE
     Dosage: SUSTAINED-RELEASE
     Route: 048
     Dates: start: 20220426, end: 20220511
  35. METOPROLOL SUCCINATE [Concomitant]
     Active Substance: METOPROLOL SUCCINATE
     Dosage: SUSTAINED-RELEASE
     Route: 048
     Dates: start: 20220511, end: 20220513
  36. AMBROXOL HYDROCHLORIDE [Concomitant]
     Active Substance: AMBROXOL HYDROCHLORIDE
     Indication: Productive cough
     Dosage: UNK
     Route: 042
     Dates: start: 20220426, end: 20220427
  37. AMBROXOL HYDROCHLORIDE [Concomitant]
     Active Substance: AMBROXOL HYDROCHLORIDE
     Dosage: UNK
     Route: 042
     Dates: start: 20220427, end: 20220513
  38. MOSAPRIDE CITRATE [Concomitant]
     Active Substance: MOSAPRIDE CITRATE
     Indication: Gastrointestinal disorder
     Dosage: UNK
     Route: 048
     Dates: start: 20220426, end: 20220426
  39. MOSAPRIDE CITRATE [Concomitant]
     Active Substance: MOSAPRIDE CITRATE
     Dosage: UNK
     Route: 048
     Dates: start: 20220426, end: 20220513
  40. OMEPRAZOLE SODIUM [Concomitant]
     Active Substance: OMEPRAZOLE SODIUM
     Indication: Prophylaxis
     Dosage: UNK
     Route: 042
     Dates: start: 20220426, end: 20220513
  41. HEPARIN SODIUM [Concomitant]
     Active Substance: HEPARIN SODIUM
     Indication: COVID-19
     Dosage: UNK
     Route: 058
     Dates: start: 20220430, end: 20220430
  42. HEPARIN SODIUM [Concomitant]
     Active Substance: HEPARIN SODIUM
     Dosage: UNK
     Route: 058
     Dates: start: 20220430, end: 20220504
  43. THYMALFASIN [Concomitant]
     Active Substance: THYMALFASIN
     Indication: COVID-19
     Dosage: UNK
     Route: 058
     Dates: start: 20220501, end: 20220513
  44. ENOXAPARIN SODIUM [Concomitant]
     Active Substance: ENOXAPARIN SODIUM
     Indication: COVID-19
     Dosage: UNK
     Route: 058
     Dates: start: 20220504, end: 20220513
  45. LACTULOSE [Concomitant]
     Active Substance: LACTULOSE
     Indication: Feeling of relaxation
     Dosage: UNK
     Route: 048
     Dates: start: 20220507, end: 20220507
  46. LACTULOSE [Concomitant]
     Active Substance: LACTULOSE
     Dosage: UNK
     Dates: start: 20220507, end: 20220513
  47. ALBUMIN HUMAN [Concomitant]
     Active Substance: ALBUMIN HUMAN
     Indication: Nutritional supplementation
     Dosage: UNK
     Route: 042
     Dates: start: 20220420, end: 20220420
  48. ALBUMIN HUMAN [Concomitant]
     Active Substance: ALBUMIN HUMAN
     Dosage: UNK
     Route: 042
     Dates: start: 20220422, end: 20220422
  49. ALBUMIN HUMAN [Concomitant]
     Active Substance: ALBUMIN HUMAN
     Dosage: UNK
     Route: 042
     Dates: start: 20220504, end: 20220504
  50. HERBALS\MENTHOL [Concomitant]
     Active Substance: HERBALS\MENTHOL
     Indication: COVID-19
     Dosage: UNK
     Route: 048
     Dates: start: 20220423, end: 202204
  51. COMPOUND POLYMYXIN B [Concomitant]
     Indication: Infection
     Dosage: UNK
     Route: 061
     Dates: start: 20220423, end: 202204
  52. COMPOUND CHLORHEXIDINE GARGLE [Concomitant]
     Indication: Therapeutic gargle
     Dosage: UNK
     Dates: start: 20220429, end: 20220429
  53. COMPOUND CHLORHEXIDINE GARGLE [Concomitant]
     Dosage: UNK
     Dates: start: 20220508, end: 20220508
  54. METHYLPREDNISOLONE SODIUM SUCCINATE [Concomitant]
     Active Substance: METHYLPREDNISOLONE SODIUM SUCCINATE
     Indication: COVID-19
     Dosage: UNK
     Route: 042
     Dates: start: 20220426, end: 20220426

REACTIONS (1)
  - Overdose [Unknown]
